FAERS Safety Report 19284286 (Version 1)
Quarter: 2021Q2

REPORT INFORMATION
  Report Type: Spontaneous
  Country: US (occurrence: US)
  Receive Date: 20210521
  Receipt Date: 20210521
  Transmission Date: 20210717
  Serious: No
  Sender: FDA-Public Use
  Company Number: US-ELI_LILLY_AND_COMPANY-US202105009254

PATIENT
  Sex: Female

DRUGS (1)
  1. TRULICITY [Suspect]
     Active Substance: DULAGLUTIDE
     Indication: DIABETES MELLITUS MANAGEMENT
     Dosage: 3 MG, UNKNOWN
     Route: 065
     Dates: start: 202103

REACTIONS (1)
  - Gastric disorder [Recovered/Resolved]

NARRATIVE: CASE EVENT DATE: 20210501
